FAERS Safety Report 7726080-3 (Version None)
Quarter: 2011Q3

REPORT INFORMATION
  Report Type: 
  Country: None (occurrence: None)
  Receive Date: 20110902
  Receipt Date: 20110819
  Transmission Date: 20111222
  Serious: Yes (Death, Hospitalization)
  Sender: FDA-Public Use
  Company Number: GB-WATSON-2011-13286

PATIENT
  Age: 11 Month
  Sex: Female

DRUGS (1)
  1. TACROLIMUS [Suspect]
     Indication: ORGAN TRANSPLANT
     Dosage: UNK

REACTIONS (4)
  - DEEP VEIN THROMBOSIS [None]
  - ANAEMIA HAEMOLYTIC AUTOIMMUNE [None]
  - MULTI-ORGAN FAILURE [None]
  - GANGRENE [None]
